FAERS Safety Report 8366960-1 (Version None)
Quarter: 2012Q2

REPORT INFORMATION
  Report Type: 
  Country: None (occurrence: None)
  Receive Date: 20120517
  Receipt Date: 20120514
  Transmission Date: 20120825
  Serious: Yes (Hospitalization)
  Sender: FDA-Public Use
  Company Number: PHHY2011AU05085

PATIENT
  Sex: Male

DRUGS (3)
  1. CLOZARIL [Suspect]
     Dosage: 600 MG
     Dates: start: 20031006, end: 20101201
  2. CLOZARIL [Suspect]
     Dosage: 600 MG,
     Dates: start: 20050315
  3. CLOZARIL [Suspect]
     Dosage: UNK UKN, UNK
     Dates: start: 20101201

REACTIONS (2)
  - SCHIZOPHRENIA [None]
  - PSYCHOTIC DISORDER [None]
